FAERS Safety Report 21938510 (Version 2)
Quarter: 2023Q2

REPORT INFORMATION
  Report Type: Spontaneous
  Country: FR (occurrence: FR)
  Receive Date: 20230201
  Receipt Date: 20230529
  Transmission Date: 20230722
  Serious: Yes (Death, Life-Threatening, Other)
  Sender: FDA-Public Use
  Company Number: None

PATIENT
  Age: 80 Year
  Sex: Female
  Weight: 69 kg

DRUGS (3)
  1. KEYTRUDA [Suspect]
     Active Substance: PEMBROLIZUMAB
     Indication: Sarcoma uterus
     Dosage: 200 MILLIGRAM, QD
     Route: 042
     Dates: start: 20221028
  2. LENVATINIB MESYLATE [Suspect]
     Active Substance: LENVATINIB MESYLATE
     Indication: Sarcoma uterus
     Route: 048
     Dates: start: 20221028
  3. RAMIPRIL [Concomitant]
     Active Substance: RAMIPRIL

REACTIONS (2)
  - Ischaemic stroke [Fatal]
  - Status epilepticus [Not Recovered/Not Resolved]

NARRATIVE: CASE EVENT DATE: 20221225
